FAERS Safety Report 16818117 (Version 2)
Quarter: 2019Q4

REPORT INFORMATION
  Report Type: Spontaneous
  Country: FR (occurrence: FR)
  Receive Date: 20190917
  Receipt Date: 20191031
  Transmission Date: 20200122
  Serious: Yes (Life-Threatening)
  Sender: FDA-Public Use
  Company Number: FR-PFIZER INC-2019398372

PATIENT
  Age: 46 Year
  Sex: Male

DRUGS (1)
  1. IBUPROFEN. [Suspect]
     Active Substance: IBUPROFEN
     Indication: HEADACHE
     Dosage: 1200 MG, 1X/DAY
     Route: 048
     Dates: start: 20190617, end: 20190619

REACTIONS (1)
  - Infection masked [Recovered/Resolved with Sequelae]

NARRATIVE: CASE EVENT DATE: 201906
